FAERS Safety Report 8072936-4 (Version None)
Quarter: 2011Q4

REPORT INFORMATION
  Report Type: 
  Country: None (occurrence: None)
  Receive Date: 20111221
  Receipt Date: 20101111
  Transmission Date: 20120403
  Serious: Yes (Other)
  Sender: FDA-Public Use
  Company Number: PHHY2010US72111

PATIENT
  Age: 73 Year
  Sex: Male

DRUGS (3)
  1. EXJADE [Suspect]
     Indication: ANAEMIA
     Dosage: 1500 MG, QD, ORAL
     Route: 048
     Dates: start: 20101008
  2. EXJADE [Suspect]
     Indication: LYMPHATIC DISORDER
     Dosage: 1500 MG, QD, ORAL
     Route: 048
     Dates: start: 20101008
  3. EXJADE [Suspect]
     Indication: MYELODYSPLASTIC SYNDROME
     Dosage: 1500 MG, QD, ORAL
     Route: 048
     Dates: start: 20101008

REACTIONS (5)
  - PRURITUS [None]
  - DIARRHOEA [None]
  - RASH [None]
  - WEIGHT INCREASED [None]
  - HEARING IMPAIRED [None]
